FAERS Safety Report 11401671 (Version 3)
Quarter: 2016Q2

REPORT INFORMATION
  Report Type: Report from Study
  Country: US (occurrence: US)
  Receive Date: 20150821
  Receipt Date: 20160617
  Transmission Date: 20160815
  Serious: No
  Sender: FDA-Public Use
  Company Number: PHHY2013US102123

PATIENT
  Age: 53 Year
  Sex: Female

DRUGS (2)
  1. MELOXICAM. [Concomitant]
     Active Substance: MELOXICAM
     Indication: NECK PAIN
     Dosage: UNK
     Route: 065
     Dates: start: 20131008
  2. GILENYA [Suspect]
     Active Substance: FINGOLIMOD HYDROCHLORIDE
     Indication: MULTIPLE SCLEROSIS
     Dosage: UNK UNK, QD
     Route: 048

REACTIONS (7)
  - Alanine aminotransferase increased [Recovered/Resolved]
  - Rash macular [Unknown]
  - White blood cell count decreased [Unknown]
  - Blood alkaline phosphatase decreased [Recovered/Resolved]
  - Blood cholesterol increased [Unknown]
  - Lymphocyte count decreased [Unknown]
  - Muscular weakness [Unknown]

NARRATIVE: CASE EVENT DATE: 20130423
